FAERS Safety Report 18963048 (Version 1)
Quarter: 2021Q1

REPORT INFORMATION
  Report Type: Spontaneous
  Country: CN (occurrence: CN)
  Receive Date: 20210303
  Receipt Date: 20210303
  Transmission Date: 20210420
  Serious: Yes (Other)
  Sender: FDA-Public Use
  Company Number: CN-PFIZER INC-2021187408

PATIENT
  Age: 85 Year
  Sex: Male
  Weight: 54 kg

DRUGS (1)
  1. METHYLPREDNISOLONE SODIUM SUCCINATE. [Suspect]
     Active Substance: METHYLPREDNISOLONE SODIUM SUCCINATE
     Indication: GUILLAIN-BARRE SYNDROME
     Dosage: 1 G, 1X/DAY
     Route: 041
     Dates: start: 20210210, end: 20210212

REACTIONS (2)
  - Sputum retention [Recovering/Resolving]
  - Hypertensive encephalopathy [Recovering/Resolving]

NARRATIVE: CASE EVENT DATE: 20210210
